FAERS Safety Report 5401466-0 (Version None)
Quarter: 2007Q3

REPORT INFORMATION
  Report Type: 
  Country: None (occurrence: None)
  Receive Date: 20070726
  Receipt Date: 20070716
  Transmission Date: 20080115
  Serious: Yes (Death, Disabling)
  Sender: FDA-Public Use
  Company Number: OSCN-NO-0707L-0293

PATIENT
  Age: 61 Year
  Sex: Male

DRUGS (2)
  1. OMNISCAN [Suspect]
     Indication: RENAL ARTERY STENOSIS
     Dosage: 0.1 MMOL/KG, SINGLE DOSE
     Dates: start: 20030701, end: 20030701
  2. EPOGEN [Concomitant]

REACTIONS (14)
  - ANTINUCLEAR ANTIBODY POSITIVE [None]
  - CARDIAC TAMPONADE [None]
  - CARDIO-RESPIRATORY ARREST [None]
  - DISEASE PROGRESSION [None]
  - FIBROSIS [None]
  - HAEMODIALYSIS [None]
  - LEUKOCYTOSIS [None]
  - MEDIASTINAL FIBROSIS [None]
  - NEPHROGENIC SYSTEMIC FIBROSIS [None]
  - NEUTROPHILIA [None]
  - NORMOCHROMIC NORMOCYTIC ANAEMIA [None]
  - RED BLOOD CELL SEDIMENTATION RATE INCREASED [None]
  - RENAL FAILURE CHRONIC [None]
  - RETROPERITONEAL FIBROSIS [None]
